FAERS Safety Report 8012933-8 (Version None)
Quarter: 2011Q4

REPORT INFORMATION
  Report Type: 
  Country: None (occurrence: None)
  Receive Date: 20111229
  Receipt Date: 20111222
  Transmission Date: 20120403
  Serious: Yes (Other)
  Sender: FDA-Public Use
  Company Number: HK-ASTELLAS-2011JP009566

PATIENT
  Age: 63 Year
  Sex: Female

DRUGS (6)
  1. FEBUXOSTAT [Interacting]
     Indication: GOUT
     Dosage: 40 MG, UNKNOWN/D
     Route: 048
     Dates: start: 20110101
  2. FEBUXOSTAT [Interacting]
     Dosage: 20 MG, UNKNOWN/D
     Route: 048
  3. TACROLIMUS [Interacting]
     Dosage: 4 MG, UNKNOWN/D
     Route: 048
  4. FEBUXOSTAT [Interacting]
     Dosage: 20 MG, QOD
     Route: 048
  5. TACROLIMUS [Suspect]
     Indication: RENAL TRANSPLANT
     Dosage: 6 MG, UNKNOWN/D
     Route: 048
  6. STEROID [Concomitant]
     Dosage: UNK
     Route: 065

REACTIONS (1)
  - DRUG INTERACTION [None]
